FAERS Safety Report 6321554-4 (Version None)
Quarter: 2009Q3

REPORT INFORMATION
  Report Type: 
  Country: None (occurrence: None)
  Receive Date: 20090821
  Receipt Date: 20090821
  Transmission Date: 20100115
  Serious: Yes (Life-Threatening, Other)
  Sender: FDA-Public Use
  Company Number: None

PATIENT
  Age: 32 Year
  Sex: Male
  Weight: 57 kg

DRUGS (1)
  1. LEVAQUIN [Suspect]
     Indication: NASAL DISORDER
     Dosage: TAKE 1 TABLET BY MOUTH ONCE DAILY FOR 2 WEEKS EVERY MORNING AT BREAKFAST NONE
     Route: 048
     Dates: start: 20090701, end: 20090715

REACTIONS (7)
  - APHASIA [None]
  - DISTURBANCE IN ATTENTION [None]
  - HYPERHIDROSIS [None]
  - IMMOBILE [None]
  - LIP PAIN [None]
  - MALAISE [None]
  - VEIN PAIN [None]
